FAERS Safety Report 7580425-6 (Version None)
Quarter: 2011Q2

REPORT INFORMATION
  Report Type: 
  Country: None (occurrence: None)
  Receive Date: 20110610
  Receipt Date: 20110531
  Transmission Date: 20111010
  Serious: Yes (Hospitalization, Other)
  Sender: FDA-Public Use
  Company Number: AU-IGSA-IG855

PATIENT
  Age: 77 Year
  Sex: Female
  Weight: 85 kg

DRUGS (1)
  1. FLEBOGAMMA [Suspect]
     Indication: MYASTHENIA GRAVIS
     Dosage: 30 G INTRAVENOUS
     Route: 042

REACTIONS (1)
  - ACUTE MYOCARDIAL INFARCTION [None]
